FAERS Safety Report 5816686-0 (Version None)
Quarter: 2008Q3

REPORT INFORMATION
  Report Type: 
  Country: None (occurrence: None)
  Receive Date: 20080721
  Receipt Date: 20071030
  Transmission Date: 20090109
  Serious: No
  Sender: FDA-Public Use
  Company Number: US-BRISTOL-MYERS SQUIBB COMPANY-13964382

PATIENT
  Sex: Female

DRUGS (5)
  1. ESTRACE [Suspect]
     Indication: ADVERSE EVENT
  2. PATANOL [Concomitant]
  3. DIFFERIN [Concomitant]
     Indication: ACNE
  4. MULTI-VITAMINS [Concomitant]
  5. SALEX [Concomitant]

REACTIONS (2)
  - OESTRADIOL DECREASED [None]
  - OSTEOPOROSIS [None]
